FAERS Safety Report 11976892 (Version 7)
Quarter: 2016Q2

REPORT INFORMATION
  Report Type: Report from Study
  Country: CA (occurrence: CA)
  Receive Date: 20160129
  Receipt Date: 20160622
  Transmission Date: 20160815
  Serious: Yes (Life-Threatening, Hospitalization)
  Sender: FDA-Public Use
  Company Number: CA-JNJFOC-20151213549

PATIENT
  Age: 44 Year
  Sex: Female
  Weight: 120 kg

DRUGS (26)
  1. LASIX [Concomitant]
     Active Substance: FUROSEMIDE
     Route: 065
  2. METFORMIN [Concomitant]
     Active Substance: METFORMIN HYDROCHLORIDE
     Route: 065
  3. ROSUVASTATIN CALCIUM. [Concomitant]
     Active Substance: ROSUVASTATIN CALCIUM
     Route: 065
     Dates: start: 20160107
  4. DOCUSATE SODIUM. [Concomitant]
     Active Substance: DOCUSATE SODIUM
     Dosage: ONE TO TWO TABLETS AT BED TIME
     Route: 065
     Dates: start: 20151218
  5. POLYETHYLENE GLYCOL 3350. [Concomitant]
     Active Substance: POLYETHYLENE GLYCOL 3350
     Route: 065
     Dates: start: 20151218
  6. NITROGLYCERIN. [Concomitant]
     Active Substance: NITROGLYCERIN
     Dosage: 0.4 MG/SPRAY UNDER THE TONGUE EVERY 5 MINUTES TO MAXIMUM OF 3 DOSES
     Route: 065
     Dates: start: 20151218
  7. HYDROMORPHONE HCL [Concomitant]
     Active Substance: HYDROMORPHONE HYDROCHLORIDE
     Route: 065
     Dates: start: 20151217
  8. NYSTATIN. [Concomitant]
     Active Substance: NYSTATIN
     Dosage: 10000 U/ML
     Route: 065
     Dates: start: 20151117
  9. ISOPHANE INSULIN [Concomitant]
     Active Substance: INSULIN NOS
     Indication: DIABETES MELLITUS
     Dosage: 100 U/ML
     Route: 065
     Dates: start: 20151113
  10. REMICADE [Suspect]
     Active Substance: INFLIXIMAB
     Indication: PSORIASIS
     Route: 042
     Dates: start: 20160125
  11. METOCLOPRAMIDE. [Concomitant]
     Active Substance: METOCLOPRAMIDE
     Route: 065
     Dates: start: 20151218
  12. ACETYLSALICYLIC ACID [Concomitant]
     Active Substance: ASPIRIN
     Dosage: AT BED TIME
     Route: 065
     Dates: start: 20160107
  13. REMICADE [Suspect]
     Active Substance: INFLIXIMAB
     Indication: PSORIASIS
     Route: 042
     Dates: start: 20151130
  14. CALCIUM [Concomitant]
     Active Substance: CALCIUM
     Indication: NUTRITIONAL SUPPLEMENTATION
     Route: 065
  15. INSULIN [Concomitant]
     Active Substance: INSULIN NOS
     Route: 065
  16. TRAZODONE [Concomitant]
     Active Substance: TRAZODONE HYDROCHLORIDE
     Dosage: 3 TABLETS AT BED TIME
     Route: 065
     Dates: start: 20160107
  17. DOXYCYCLINE HYCLATE. [Concomitant]
     Active Substance: DOXYCYCLINE HYCLATE
     Route: 065
     Dates: start: 20160107
  18. HYDROMORPHONE HCL [Concomitant]
     Active Substance: HYDROMORPHONE HYDROCHLORIDE
     Dosage: HALF TABLET
     Route: 065
     Dates: start: 20151124
  19. LABETALOL [Concomitant]
     Active Substance: LABETALOL\LABETALOL HYDROCHLORIDE
     Dosage: HALF TABLET ONCE DAILY
     Route: 065
     Dates: start: 20160107
  20. COVERSYL [Concomitant]
     Active Substance: PERINDOPRIL
     Route: 065
  21. DULOXETINE. [Concomitant]
     Active Substance: DULOXETINE
     Route: 065
     Dates: start: 20160107
  22. REMICADE [Suspect]
     Active Substance: INFLIXIMAB
     Indication: PSORIASIS
     Route: 042
     Dates: start: 20151130
  23. APO-PREDNISONE [Concomitant]
     Active Substance: PREDNISONE
     Dosage: ONE AND HALF TABLET OF STRENGTH 5 MG WITH MEAL
     Route: 065
     Dates: start: 20160101, end: 20160128
  24. FERROUS FUMARATE [Concomitant]
     Active Substance: FERROUS FUMARATE
     Route: 065
     Dates: start: 20160107
  25. INDAPAMIDE. [Concomitant]
     Active Substance: INDAPAMIDE
     Route: 065
     Dates: start: 20160107
  26. INSULIN LISPRO [Concomitant]
     Active Substance: INSULIN LISPRO
     Indication: DIABETES MELLITUS
     Dosage: 100 U/ML
     Route: 065
     Dates: start: 20151120

REACTIONS (13)
  - Stoma site abscess [Recovered/Resolved]
  - Hospitalisation [Unknown]
  - Blood glucose decreased [Recovered/Resolved]
  - Chest discomfort [Not Recovered/Not Resolved]
  - Product use issue [Unknown]
  - Syncope [Not Recovered/Not Resolved]
  - Malaise [Not Recovered/Not Resolved]
  - Metabolic disorder [Unknown]
  - Seizure [Recovered/Resolved]
  - Diabetic ketoacidosis [Recovered/Resolved]
  - Psoriasis [Not Recovered/Not Resolved]
  - Infusion related reaction [Not Recovered/Not Resolved]
  - Off label use [Unknown]

NARRATIVE: CASE EVENT DATE: 20151130
